FAERS Safety Report 9725512 (Version 4)
Quarter: 2014Q1

REPORT INFORMATION
  Report Type: Spontaneous
  Country: DE (occurrence: DE)
  Receive Date: 20131203
  Receipt Date: 20140203
  Transmission Date: 20141002
  Serious: Yes (Hospitalization, Other)
  Sender: FDA-Public Use
  Company Number: PHHY2013DE120457

PATIENT
  Sex: Female
  Weight: 81 kg

DRUGS (8)
  1. TASIGNA [Suspect]
     Indication: CHRONIC MYELOID LEUKAEMIA
     Dosage: 200 MG, BID
     Route: 048
     Dates: start: 20131014, end: 20131020
  2. TASIGNA [Suspect]
     Dosage: 200 MG, QD
     Route: 048
     Dates: start: 20131104
  3. TASIGNA [Suspect]
     Dosage: 200 MG, BID
     Route: 048
     Dates: start: 20131107
  4. TASIGNA [Suspect]
     Dosage: 500 MG, PER DAY
     Route: 048
     Dates: start: 20131129
  5. TASIGNA [Suspect]
     Dosage: 300 MG, BID
     Route: 048
     Dates: start: 20131204
  6. RAMIPRIL [Concomitant]
     Indication: HYPERTENSION
     Dosage: 5 MG, DAILY
     Route: 048
     Dates: start: 2007
  7. HCT [Concomitant]
     Indication: HYPERTENSION
     Dosage: 25 MG, DAILY
     Route: 048
     Dates: start: 2007
  8. EUTHYROX [Concomitant]
     Indication: THYROID DISORDER
     Dosage: 75 UG/DAY
     Route: 048
     Dates: start: 2002

REACTIONS (8)
  - Pancreatitis [Recovered/Resolved]
  - Lipase abnormal [Recovered/Resolved]
  - Amylase increased [Recovered/Resolved]
  - Abdominal pain upper [Recovered/Resolved]
  - Headache [Recovered/Resolved]
  - Local swelling [Recovered/Resolved]
  - Dry skin [Unknown]
  - Arthralgia [Recovered/Resolved]
